FAERS Safety Report 9623679 (Version 2)
Quarter: 2013Q4

REPORT INFORMATION
  Report Type: Spontaneous
  Country: US (occurrence: US)
  Receive Date: 20131015
  Receipt Date: 20131015
  Transmission Date: 20140711
  Serious: No
  Sender: FDA-Public Use
  Company Number: US-PURDUE-USA-2012-0087765

PATIENT
  Age: 67 Year
  Sex: Female
  Weight: 97.96 kg

DRUGS (1)
  1. BUTRANS [Suspect]
     Indication: BACK PAIN
     Dosage: 20 MCG/HR, UNK
     Route: 062
     Dates: start: 20120419, end: 20120423

REACTIONS (6)
  - Drug withdrawal syndrome [Unknown]
  - Nausea [Unknown]
  - Headache [Unknown]
  - Tremor [Unknown]
  - Agitation [Recovered/Resolved]
  - Pain [Recovered/Resolved]
